FAERS Safety Report 10232737 (Version 1)
Quarter: 2014Q2

REPORT INFORMATION
  Report Type: Spontaneous
  Country: US (occurrence: None)
  Receive Date: 20140610
  Receipt Date: 20140610
  Transmission Date: 20141212
  Serious: Yes (Hospitalization)
  Sender: FDA-Public Use
  Company Number: AUR-APL-2014-06181

PATIENT
  Age: 33 Year
  Sex: Female

DRUGS (2)
  1. ZOLPIDEM (ZOLPIDEM) [Suspect]
     Indication: INSOMNIA
     Dosage: 1 D
  2. CLONAZEPAM (CLONAZEPAM) [Concomitant]

REACTIONS (14)
  - Eye movement disorder [None]
  - Fear [None]
  - Paranoia [None]
  - Suicidal ideation [None]
  - Depressed mood [None]
  - Insomnia [None]
  - Hallucination, auditory [None]
  - Metamorphopsia [None]
  - Hallucination, visual [None]
  - Tremor [None]
  - Tremor [None]
  - Overdose [None]
  - Schizoaffective disorder [None]
  - Condition aggravated [None]
